FAERS Safety Report 9882388 (Version 1)
Quarter: 2014Q1

REPORT INFORMATION
  Report Type: Spontaneous
  Country: JP (occurrence: JP)
  Receive Date: 20140207
  Receipt Date: 20140207
  Transmission Date: 20141002
  Serious: Yes (Other)
  Sender: FDA-Public Use
  Company Number: JP-GLAXOSMITHKLINE-B0966893A

PATIENT
  Age: 12 Year
  Sex: Female

DRUGS (1)
  1. RELENZA [Suspect]
     Indication: PRODUCT USED FOR UNKNOWN INDICATION
     Dosage: 10MG TWICE PER DAY
     Route: 055
     Dates: start: 20140131, end: 20140202

REACTIONS (4)
  - Loss of consciousness [Unknown]
  - Contusion [Unknown]
  - Abnormal behaviour [Recovered/Resolved]
  - Memory impairment [Unknown]
